FAERS Safety Report 4653283-7 (Version None)
Quarter: 2005Q2

REPORT INFORMATION
  Report Type: 
  Country: None (occurrence: None)
  Receive Date: 20050503
  Receipt Date: 20050426
  Transmission Date: 20051028
  Serious: Yes (Hospitalization)
  Sender: FDA-Public Use
  Company Number: GBWYE606621APR05

PATIENT
  Age: 49 Year
  Sex: Male

DRUGS (3)
  1. RAPAMUNE [Suspect]
     Indication: PROPHYLAXIS AGAINST TRANSPLANT REJECTION
     Dosage: 3 MG 1X PER 1 DAY
     Route: 048
     Dates: start: 20040628
  2. WARFARIN SODIUM [Concomitant]
  3. HEPARIN [Concomitant]

REACTIONS (1)
  - RENAL NEOPLASM [None]
